FAERS Safety Report 4945886-7 (Version None)
Quarter: 2006Q2

REPORT INFORMATION
  Report Type: 
  Country: None (occurrence: None)
  Receive Date: 20060117
  Receipt Date: 20041221
  Transmission Date: 20061013
  Serious: Yes (Other)
  Sender: FDA-Public Use
  Company Number: A03200500013

PATIENT
  Sex: Male

DRUGS (2)
  1. PLAVIX [Suspect]
     Indication: STENT PLACEMENT
     Dosage: 75 MG QD - ORAL
     Route: 048
  2. HEPARIN [Suspect]
     Indication: STENT PLACEMENT
     Dosage: INTRAVENOUS NOS
     Route: 042

REACTIONS (1)
  - PLATELET COUNT DECREASED [None]
